FAERS Safety Report 21153587 (Version 2)
Quarter: 2022Q3

REPORT INFORMATION
  Report Type: Spontaneous
  Country: US (occurrence: US)
  Receive Date: 20220731
  Receipt Date: 20220811
  Transmission Date: 20221027
  Serious: No
  Sender: FDA-Public Use
  Company Number: US-AMGEN-USASP2022124876

PATIENT
  Age: 65 Year
  Sex: Female
  Weight: 62.1 kg

DRUGS (1)
  1. NEULASTA [Suspect]
     Active Substance: PEGFILGRASTIM
     Indication: Prophylaxis
     Dosage: UNK
     Route: 065
     Dates: start: 20220519

REACTIONS (2)
  - Magnetic resonance imaging [Unknown]
  - Device use error [Unknown]

NARRATIVE: CASE EVENT DATE: 20220610
